FAERS Safety Report 20751616 (Version 1)
Quarter: 2022Q2

REPORT INFORMATION
  Report Type: Spontaneous
  Country: TR (occurrence: TR)
  Receive Date: 20220426
  Receipt Date: 20220426
  Transmission Date: 20220721
  Serious: Yes (Hospitalization, Other)
  Sender: FDA-Public Use
  Company Number: TR-GILEAD-2022-0578586

PATIENT
  Age: 34 Year
  Sex: Male
  Weight: 60 kg

DRUGS (1)
  1. BIKTARVY [Suspect]
     Active Substance: BICTEGRAVIR SODIUM\EMTRICITABINE\TENOFOVIR ALAFENAMIDE FUMARATE
     Indication: HIV infection
     Route: 050

REACTIONS (6)
  - Drug ineffective [Unknown]
  - Loss of consciousness [Unknown]
  - Incorrect route of product administration [Unknown]
  - Off label use [Unknown]
  - Blood HIV RNA increased [Unknown]
  - Enteral nutrition [Unknown]
